FAERS Safety Report 9509411 (Version 2)
Quarter: 2013Q3

REPORT INFORMATION
  Report Type: Spontaneous
  Country: US (occurrence: US)
  Receive Date: 20130909
  Receipt Date: 20130909
  Transmission Date: 20140515
  Serious: Yes (Disabling)
  Sender: FDA-Public Use
  Company Number: US-BRISTOL-MYERS SQUIBB COMPANY-17301482

PATIENT
  Age: 71 Year
  Sex: Male

DRUGS (6)
  1. ABILIFY [Suspect]
     Indication: BIPOLAR II DISORDER
     Dosage: RED TO 5 MG AND 2.5MG
     Route: 048
     Dates: start: 201206, end: 201301
  2. WELLBUTRIN [Concomitant]
  3. OMEPRAZOLE [Concomitant]
  4. LOVASTATIN [Concomitant]
  5. LAMOTRIGINE [Concomitant]
  6. ASPIRIN [Concomitant]

REACTIONS (1)
  - Parkinsonism [Unknown]
